FAERS Safety Report 6671587-3 (Version None)
Quarter: 2010Q2

REPORT INFORMATION
  Report Type: 
  Country: None (occurrence: None)
  Receive Date: 20100406
  Receipt Date: 20100406
  Transmission Date: 20101027
  Serious: Yes (Other)
  Sender: FDA-Public Use
  Company Number: None

PATIENT
  Age: 64 Year
  Sex: Male
  Weight: 93.8946 kg

DRUGS (2)
  1. DOCUSATE NA/ SENNOSIDES  50MG/ 8.6MG QUALITEST PRODUCTNDC-00603-02 [Suspect]
     Indication: CONSTIPATION
     Dosage: 50MG/8.6MG QID PRN PO
     Route: 048
     Dates: start: 20090101, end: 20100301
  2. DOCUSATE NA/SENNOSIDES 50MG/8.6MG MAJOR PHARMACEU NDC-00904-5643-60 [Suspect]
     Indication: CONSTIPATION
     Dosage: 50MG/8.6MG QID PRN PO
     Route: 048
     Dates: start: 20090101, end: 20100301

REACTIONS (2)
  - CONSTIPATION [None]
  - RECTAL HAEMORRHAGE [None]
